FAERS Safety Report 5702014-8 (Version None)
Quarter: 2008Q2

REPORT INFORMATION
  Report Type: 
  Country: None (occurrence: None)
  Receive Date: 20080411
  Receipt Date: 20080402
  Transmission Date: 20081010
  Serious: Yes (Hospitalization, Other)
  Sender: FDA-Public Use
  Company Number: US-AMGEN-STX266876

PATIENT
  Sex: Male

DRUGS (3)
  1. ENBREL [Suspect]
     Indication: RHEUMATOID ARTHRITIS
     Route: 058
     Dates: start: 19980401
  2. ARAVA [Concomitant]
     Route: 048
     Dates: start: 20060101
  3. PREDNISONE [Concomitant]
     Route: 065
     Dates: start: 20060101

REACTIONS (4)
  - IMPAIRED HEALING [None]
  - OSTEOMYELITIS [None]
  - PAIN IN EXTREMITY [None]
  - RHEUMATOID ARTHRITIS [None]
